FAERS Safety Report 13517528 (Version 1)
Quarter: 2017Q2

REPORT INFORMATION
  Report Type: Spontaneous
  Country: US (occurrence: US)
  Receive Date: 20170505
  Receipt Date: 20170505
  Transmission Date: 20170830
  Serious: Yes (Hospitalization)
  Sender: FDA-Public Use
  Company Number: None

PATIENT
  Age: 36 Year
  Sex: Female
  Weight: 81.7 kg

DRUGS (3)
  1. PCN [Concomitant]
     Active Substance: PENICILLIN
  2. IBUPROFEN. [Suspect]
     Active Substance: IBUPROFEN
     Indication: TOOTHACHE
     Dosage: RECENT X 2WEEKS
  3. MVI [Concomitant]
     Active Substance: VITAMINS

REACTIONS (2)
  - Anaemia [None]
  - Mallory-Weiss syndrome [None]

NARRATIVE: CASE EVENT DATE: 20160906
